FAERS Safety Report 4666676-9 (Version None)
Quarter: 2005Q2

REPORT INFORMATION
  Report Type: 
  Country: None (occurrence: None)
  Receive Date: 20050518
  Receipt Date: 20050512
  Transmission Date: 20051028
  Serious: Yes (Life-Threatening)
  Sender: FDA-Public Use
  Company Number: 2005-128190-NL

PATIENT
  Age: 56 Year
  Sex: Male

DRUGS (2)
  1. PANCURONIUM BROMIDE [Suspect]
     Indication: GENERAL ANAESTHESIA
     Dosage: 4 MG ONCE/1 MG ONCE, INTRAVENOUS (NOS)
     Route: 042
     Dates: start: 20050511, end: 20050511
  2. PROPOFOL [Suspect]
     Indication: GENERAL ANAESTHESIA
     Dosage: 50 MG ONCE, INTRAVENOUS (NOS)
     Route: 042
     Dates: start: 20050511, end: 20050511

REACTIONS (9)
  - ANAPHYLACTIC SHOCK [None]
  - BRONCHOSTENOSIS [None]
  - ERYTHEMA [None]
  - HYPERTENSION [None]
  - LARYNGEAL OEDEMA [None]
  - OEDEMA MOUTH [None]
  - PROCEDURAL COMPLICATION [None]
  - TACHYCARDIA [None]
  - TONGUE OEDEMA [None]
